FAERS Safety Report 12802381 (Version 2)
Quarter: 2018Q1

REPORT INFORMATION
  Report Type: Spontaneous
  Country: US (occurrence: US)
  Receive Date: 20161003
  Receipt Date: 20180201
  Transmission Date: 20180508
  Serious: No
  Sender: FDA-Public Use
  Company Number: US-AUROBINDO-AUR-APU-2016-09013

PATIENT
  Age: 64 Year
  Sex: Female
  Weight: 122.45 kg

DRUGS (4)
  1. DULOXETINE DELAYED-RELEASE CAPSULES USP 20 MG [Suspect]
     Active Substance: DULOXETINE
     Indication: CEREBRAL HAEMORRHAGE
     Dosage: 1 DF, DAILY
     Route: 065
     Dates: end: 20160626
  2. TYLENOL [Concomitant]
     Active Substance: ACETAMINOPHEN
     Indication: PRODUCT USED FOR UNKNOWN INDICATION
     Dosage: EXTRA STRENGTH
     Route: 065
  3. PLAVIX [Concomitant]
     Active Substance: CLOPIDOGREL BISULFATE
     Indication: PRODUCT USED FOR UNKNOWN INDICATION
     Route: 065
  4. DULOXETINE DELAYED-RELEASE CAPSULES USP 20 MG [Suspect]
     Active Substance: DULOXETINE
     Indication: PAIN MANAGEMENT

REACTIONS (3)
  - Malaise [Recovering/Resolving]
  - Dyspnoea [Recovering/Resolving]
  - Product odour abnormal [Recovering/Resolving]
